FAERS Safety Report 5564210-2 (Version None)
Quarter: 2007Q4

REPORT INFORMATION
  Report Type: 
  Country: None (occurrence: None)
  Receive Date: 20071217
  Receipt Date: 20071210
  Transmission Date: 20080405
  Serious: Yes (Hospitalization, Other)
  Sender: FDA-Public Use
  Company Number: US-MERCK-0707USA03801

PATIENT
  Age: 57 Year
  Sex: Female

DRUGS (1)
  1. FOSAMAX [Suspect]
     Indication: OSTEOPOROSIS
     Route: 048
     Dates: start: 20030101, end: 20060501

REACTIONS (12)
  - ANXIETY [None]
  - CEREBROVASCULAR ACCIDENT [None]
  - CHOLECYSTITIS ACUTE [None]
  - DEPRESSION [None]
  - ENTEROCUTANEOUS FISTULA [None]
  - OSTEONECROSIS [None]
  - OSTEORADIONECROSIS [None]
  - PANCREATITIS [None]
  - PNEUMONIA [None]
  - SMALL INTESTINAL OBSTRUCTION [None]
  - SUPRAVENTRICULAR TACHYCARDIA [None]
  - SYSTEMIC CANDIDA [None]
